FAERS Safety Report 13526667 (Version 2)
Quarter: 2017Q2

REPORT INFORMATION
  Report Type: Report from Study
  Country: BR (occurrence: BR)
  Receive Date: 20170509
  Receipt Date: 20170619
  Transmission Date: 20170830
  Serious: Yes (Hospitalization)
  Sender: FDA-Public Use
  Company Number: PHHY2017BR066796

PATIENT
  Sex: Female
  Weight: 54 kg

DRUGS (5)
  1. EXELON [Suspect]
     Active Substance: RIVASTIGMINE TARTRATE
     Indication: PRODUCT USED FOR UNKNOWN INDICATION
     Dosage: 1 DF, QD
     Route: 048
  2. CALCIUM [Concomitant]
     Active Substance: CALCIUM
     Indication: PRODUCT USED FOR UNKNOWN INDICATION
     Dosage: UNK
     Route: 065
  3. ARIMIDEX [Concomitant]
     Active Substance: ANASTROZOLE
     Indication: PRODUCT USED FOR UNKNOWN INDICATION
     Dosage: UNK
     Route: 065
  4. VITAMIN D [Concomitant]
     Active Substance: CHOLECALCIFEROL
     Indication: PRODUCT USED FOR UNKNOWN INDICATION
     Dosage: UNK
     Route: 065
  5. EXELON PATCH [Suspect]
     Active Substance: RIVASTIGMINE
     Indication: TREMOR
     Dosage: 4.6 MG, PATCH 5 (CM2), QD
     Route: 062

REACTIONS (12)
  - Gastric disorder [Unknown]
  - Pancreatic disorder [Unknown]
  - Application site pruritus [Recovered/Resolved]
  - Hypoacusis [Unknown]
  - Product use in unapproved indication [Unknown]
  - Application site mass [Recovered/Resolved]
  - Application site oedema [Recovered/Resolved]
  - Drug interaction [Recovered/Resolved]
  - General physical health deterioration [Recovered/Resolved]
  - Application site irritation [Unknown]
  - Malaise [Unknown]
  - Blood cholesterol abnormal [Unknown]
